FAERS Safety Report 15767664 (Version 1)
Quarter: 2018Q4

REPORT INFORMATION
  Report Type: Spontaneous
  Country: FR (occurrence: FR)
  Receive Date: 20181227
  Receipt Date: 20181227
  Transmission Date: 20190205
  Serious: Yes (Life-Threatening)
  Sender: FDA-Public Use
  Company Number: FR-TEVA-2018-FR-991926

PATIENT
  Age: 67 Year
  Sex: Female
  Weight: 61 kg

DRUGS (10)
  1. VANCOMYCINE [Suspect]
     Active Substance: VANCOMYCIN
     Indication: BONE MARROW FAILURE
     Route: 042
     Dates: start: 20181015, end: 20181016
  2. CELLCEPT [Suspect]
     Active Substance: MYCOPHENOLATE MOFETIL\MYCOPHENOLATE MOFETIL HYDROCHLORIDE
     Indication: PROPHYLAXIS AGAINST GRAFT VERSUS HOST DISEASE
     Dosage: 2000 MILLIGRAM DAILY;
     Route: 042
     Dates: start: 20181016
  3. DOXORUBICINE [Suspect]
     Active Substance: DOXORUBICIN
     Indication: LYMPHOMA
     Route: 041
     Dates: start: 20100212, end: 20160728
  4. FORTUM [Suspect]
     Active Substance: CEFTAZIDIME
     Indication: BONE MARROW FAILURE
     Dosage: 6 GRAM DAILY;
     Route: 042
     Dates: start: 20181016, end: 201811
  5. RITUXIMAB ((MAMMIFERE/HAMSTER/CELLULES CHO)) [Suspect]
     Active Substance: RITUXIMAB
     Indication: STEM CELL TRANSPLANT
     Dosage: 600 MILLIGRAM DAILY;
     Route: 042
     Dates: start: 20181002, end: 20181018
  6. ENDOXAN [Suspect]
     Active Substance: CYCLOPHOSPHAMIDE
     Indication: STEM CELL TRANSPLANT
     Route: 042
     Dates: start: 20181005, end: 20181016
  7. ROCEPHINE 2 G, POUDRE POUR SOLUTION POUR PERFUSION [Suspect]
     Active Substance: CEFTRIAXONE SODIUM
     Indication: APLASIA
     Dosage: 1 DOSAGE FORMS DAILY;
     Route: 042
     Dates: start: 20181012, end: 20181018
  8. AMIKLIN 1 G, POUDRE ET SOLVANT POUR SOLUTION POUR PERFUSION [Suspect]
     Active Substance: AMIKACIN
     Indication: BONE MARROW FAILURE
     Dosage: 1 DOSAGE FORMS DAILY;
     Route: 042
     Dates: start: 20181012, end: 20181017
  9. CICLOSPORINE [Suspect]
     Active Substance: CYCLOSPORINE
     Indication: PROPHYLAXIS AGAINST GRAFT VERSUS HOST DISEASE
     Dosage: 70 MILLIGRAM DAILY;
     Route: 042
     Dates: start: 20181016
  10. FLUDARABINE (PHOSPHATE DE) [Suspect]
     Active Substance: FLUDARABINE PHOSPHATE
     Indication: STEM CELL TRANSPLANT
     Dosage: 48.5 MILLIGRAM DAILY;
     Route: 042
     Dates: start: 20181005, end: 20181009

REACTIONS (2)
  - Cardiomyopathy [Not Recovered/Not Resolved]
  - Cardiac failure [Not Recovered/Not Resolved]

NARRATIVE: CASE EVENT DATE: 201810
